FAERS Safety Report 23439677 (Version 1)
Quarter: 2024Q1

REPORT INFORMATION
  Report Type: Spontaneous
  Country: JP (occurrence: JP)
  Receive Date: 20240124
  Receipt Date: 20240124
  Transmission Date: 20240410
  Serious: Yes (Other)
  Sender: FDA-Public Use
  Company Number: JP-TEVA-VS-3134412

PATIENT
  Age: 84 Year

DRUGS (2)
  1. LEVOFLOXACIN [Suspect]
     Active Substance: LEVOFLOXACIN
     Indication: Urinary tract infection enterococcal
     Route: 065
  2. BACILLUS CALMETTE-GUERIN ANTIGEN, UNSPECIFIED SUBSTRAIN [Suspect]
     Active Substance: BACILLUS CALMETTE-GUERIN ANTIGEN, UNSPECIFIED SUBSTRAIN
     Indication: Bladder transitional cell carcinoma
     Route: 043

REACTIONS (3)
  - Disseminated Bacillus Calmette-Guerin infection [Recovered/Resolved]
  - Drug ineffective [Unknown]
  - Urinary tract infection enterococcal [Unknown]
